FAERS Safety Report 9693516 (Version 1)
Quarter: 2013Q4

REPORT INFORMATION
  Report Type: Spontaneous
  Country: US (occurrence: US)
  Receive Date: 20131118
  Receipt Date: 20131118
  Transmission Date: 20140711
  Serious: Yes (Other)
  Sender: FDA-Public Use
  Company Number: US-AMGEN-USASP2013079926

PATIENT
  Age: 72 Year
  Sex: Female

DRUGS (4)
  1. PROLIA [Suspect]
     Indication: OSTEOPOROSIS POSTMENOPAUSAL
     Dosage: UNK
     Route: 065
     Dates: start: 201307
  2. LIVALO [Concomitant]
     Indication: BLOOD CHOLESTEROL INCREASED
  3. VITAMINS                           /00067501/ [Concomitant]
  4. FISH OIL [Concomitant]

REACTIONS (5)
  - Decreased immune responsiveness [Unknown]
  - Mouth ulceration [Unknown]
  - Cystitis [Unknown]
  - Aspartate aminotransferase increased [Unknown]
  - Hepatic enzyme increased [Unknown]
